FAERS Safety Report 4754728-4 (Version None)
Quarter: 2005Q3

REPORT INFORMATION
  Report Type: 
  Country: None (occurrence: None)
  Receive Date: 20050825
  Receipt Date: 20050825
  Transmission Date: 20060218
  Serious: Yes (Other)
  Sender: FDA-Public Use
  Company Number: None

PATIENT
  Age: 47 Year
  Sex: Male
  Weight: 68.0396 kg

DRUGS (1)
  1. ZYRTEC [Suspect]
     Indication: MULTIPLE ALLERGIES
     Dosage: ONE TABLET DAILY
     Dates: start: 20050714, end: 20050716

REACTIONS (3)
  - ANXIETY [None]
  - ARRHYTHMIA [None]
  - PALPITATIONS [None]
